FAERS Safety Report 11842151 (Version 1)
Quarter: 2015Q4

REPORT INFORMATION
  Report Type: Spontaneous
  Country: US (occurrence: None)
  Receive Date: 20151216
  Receipt Date: 20151216
  Transmission Date: 20160305
  Serious: No
  Sender: FDA-Public Use
  Company Number: None

PATIENT
  Sex: Female
  Weight: 58.97 kg

DRUGS (14)
  1. BABY ASPIRIN [Concomitant]
     Active Substance: ASPIRIN
  2. OSTEO BIFLEX [Concomitant]
     Active Substance: CHONDROITIN SULFATE A\GLUCOSAMINE
  3. FISH OIL [Concomitant]
     Active Substance: FISH OIL
  4. PROBIOTIC [Concomitant]
     Active Substance: PROBIOTICS NOS
  5. LEVAQUIN [Suspect]
     Active Substance: LEVOFLOXACIN
     Indication: COUGH
     Dosage: 10 PILLS 1 TAB DAILY  5 DAYS
     Dates: start: 20151125, end: 20151130
  6. HYDROCODONE [Concomitant]
     Active Substance: HYDROCODONE
  7. MULTIVITAMIN [Concomitant]
     Active Substance: VITAMINS
  8. LEVAQUIN [Suspect]
     Active Substance: LEVOFLOXACIN
     Indication: EYE INFECTION
     Dosage: 10 PILLS 1 TAB DAILY  5 DAYS
     Dates: start: 20151125, end: 20151130
  9. PROMETHAZINE [Concomitant]
     Active Substance: PROMETHAZINE\PROMETHAZINE HYDROCHLORIDE
  10. LEVAQUIN [Suspect]
     Active Substance: LEVOFLOXACIN
     Indication: ORAL INFECTION
     Dosage: 10 PILLS 1 TAB DAILY  5 DAYS
     Dates: start: 20151125, end: 20151130
  11. AMLODIPINE BESYLATE. [Concomitant]
     Active Substance: AMLODIPINE BESYLATE
  12. MEDROXYPROGESTERONE [Concomitant]
     Active Substance: MEDROXYPROGESTERONE
  13. CALCIUM 500/W BORON [Concomitant]
  14. ISOSORBIDE. [Concomitant]
     Active Substance: ISOSORBIDE

REACTIONS (5)
  - Arthralgia [None]
  - Pain in extremity [None]
  - Gait disturbance [None]
  - Myalgia [None]
  - Muscular weakness [None]
